FAERS Safety Report 9187654 (Version 2)
Quarter: 2013Q2

REPORT INFORMATION
  Report Type: Report from Study
  Country: CA (occurrence: CA)
  Receive Date: 20130325
  Receipt Date: 20130415
  Transmission Date: 20140414
  Serious: Yes (Death, Hospitalization)
  Sender: FDA-Public Use
  Company Number: PHHY2013CA028483

PATIENT
  Age: 49 Year
  Sex: Male

DRUGS (3)
  1. CLOZARIL [Suspect]
     Indication: SCHIZOAFFECTIVE DISORDER
     Dosage: 200 MG, QD
     Route: 048
     Dates: start: 20020107, end: 20130213
  2. DIVALPROEX [Concomitant]
     Dosage: 1000 MG, (PER DAY)
  3. CLONAZEPAM [Concomitant]
     Dosage: 2 MG, (PER DAY)

REACTIONS (9)
  - Neoplasm malignant [Fatal]
  - Cardiopulmonary failure [Fatal]
  - Electrolyte imbalance [Unknown]
  - Organ failure [Unknown]
  - Lethargy [Unknown]
  - Asthenia [Unknown]
  - Fall [Unknown]
  - Gait disturbance [Unknown]
  - Weight decreased [Unknown]
